FAERS Safety Report 9333334 (Version 2)
Quarter: 2013Q3

REPORT INFORMATION
  Report Type: Spontaneous
  Country: IT (occurrence: IT)
  Receive Date: 20130606
  Receipt Date: 20130729
  Transmission Date: 20140515
  Serious: Yes (Hospitalization)
  Sender: FDA-Public Use
  Company Number: IT-SANOFI-AVENTIS-2013SA054226

PATIENT
  Age: 76 Year
  Sex: Female

DRUGS (2)
  1. HYDROCHLOROTHIAZIDE/LOSARTAN POTASSIUM [Suspect]
     Indication: HYPERTENSION
     Dosage: DOSE:1 UNIT(S)
     Route: 048
     Dates: start: 20050101, end: 20130428
  2. FUROSEMIDE [Suspect]
     Indication: HYPERTENSION
     Route: 048
     Dates: start: 20130426, end: 20130428

REACTIONS (2)
  - Confusional state [Recovering/Resolving]
  - Hyponatraemia [Recovered/Resolved]
